FAERS Safety Report 24576513 (Version 1)
Quarter: 2024Q4

REPORT INFORMATION
  Report Type: Spontaneous
  Country: US (occurrence: US)
  Receive Date: 20241104
  Receipt Date: 20241104
  Transmission Date: 20250115
  Serious: Yes (Other)
  Sender: PFIZER
  Company Number: US-PFIZER INC-PV202400140878

PATIENT
  Age: 72 Year
  Sex: Female

DRUGS (1)
  1. XELJANZ XR [Suspect]
     Active Substance: TOFACITINIB CITRATE
     Indication: Psoriatic arthropathy
     Dosage: 11 MG, 1X/DAY
     Route: 048
     Dates: start: 202406, end: 20241013

REACTIONS (5)
  - Spinal disorder [Unknown]
  - Pruritus [Not Recovered/Not Resolved]
  - Fungal foot infection [Unknown]
  - Depressed mood [Unknown]
  - Malaise [Unknown]

NARRATIVE: CASE EVENT DATE: 20241001
